FAERS Safety Report 5809956-3 (Version None)
Quarter: 2008Q3

REPORT INFORMATION
  Report Type: 
  Country: None (occurrence: None)
  Receive Date: 20080714
  Receipt Date: 20080714
  Transmission Date: 20090109
  Serious: Yes (Life-Threatening)
  Sender: FDA-Public Use
  Company Number: None

PATIENT
  Age: 47 Year
  Sex: Female
  Weight: 99.7913 kg

DRUGS (2)
  1. NYSTATIN [Suspect]
     Indication: POST PROCEDURAL INFECTION
     Dosage: 1 TABLE SPOON  4 TIMES PER DAY PO
     Route: 048
     Dates: start: 20080619, end: 20080629
  2. NYSTATIN [Suspect]
     Indication: STAPHYLOCOCCAL INFECTION
     Dosage: 1 TABLE SPOON  4 TIMES PER DAY PO
     Route: 048
     Dates: start: 20080619, end: 20080629

REACTIONS (5)
  - ABDOMINAL PAIN UPPER [None]
  - DIARRHOEA [None]
  - DYSSTASIA [None]
  - MALAISE [None]
  - NAUSEA [None]
